FAERS Safety Report 4569347-2 (Version None)
Quarter: 2005Q1

REPORT INFORMATION
  Report Type: 
  Country: None (occurrence: None)
  Receive Date: 20050203
  Receipt Date: 20050124
  Transmission Date: 20050727
  Serious: Yes (Death, Life-Threatening, Hospitalization, Disabling, Other)
  Sender: FDA-Public Use
  Company Number: GB-GLAXOSMITHKLINE-B0365597A

PATIENT
  Age: 62 Year
  Sex: Female
  Weight: 59.55 kg

DRUGS (2)
  1. PAROXETINE HYDROCHLORIDE [Suspect]
     Indication: DEPRESSION
     Dosage: 1UNIT PER DAY
     Route: 048
     Dates: start: 20041122, end: 20050103
  2. ZOPICLONE [Concomitant]
     Dosage: 1TAB AT NIGHT
     Route: 065
     Dates: end: 20041220

REACTIONS (1)
  - COMPLETED SUICIDE [None]
